FAERS Safety Report 19899361 (Version 1)
Quarter: 2021Q3

REPORT INFORMATION
  Report Type: Spontaneous
  Country: GB (occurrence: GB)
  Receive Date: 20210929
  Receipt Date: 20210929
  Transmission Date: 20211014
  Serious: Yes (Other)
  Sender: FDA-Public Use
  Company Number: GB-MYLANLABS-2021M1066606

PATIENT
  Age: 62 Year
  Sex: Male
  Weight: 92 kg

DRUGS (2)
  1. SPIRONOLACTON [Suspect]
     Active Substance: SPIRONOLACTONE
     Indication: HEPATIC CIRRHOSIS
     Dosage: 25 MILLIGRAM
     Route: 048
     Dates: start: 20180601, end: 20210909
  2. NAPROXEN. [Suspect]
     Active Substance: NAPROXEN
     Indication: HAEMATOMA
     Dosage: UNK
     Route: 048
     Dates: end: 20210909

REACTIONS (2)
  - Presyncope [Recovered/Resolved]
  - Malaise [Unknown]

NARRATIVE: CASE EVENT DATE: 20210909
